FAERS Safety Report 15653695 (Version 1)
Quarter: 2018Q4

REPORT INFORMATION
  Report Type: Spontaneous
  Country: FR (occurrence: FR)
  Receive Date: 20181124
  Receipt Date: 20181124
  Transmission Date: 20190205
  Serious: Yes (Hospitalization)
  Sender: FDA-Public Use
  Company Number: PHHY2018FR163238

PATIENT
  Age: 66 Year
  Sex: Male

DRUGS (3)
  1. LEVOFLOXACIN. [Suspect]
     Active Substance: LEVOFLOXACIN
     Indication: LUNG DISORDER
     Dosage: 500 MG, QD
     Route: 042
     Dates: start: 20181026
  2. FLUCONAZOLE. [Suspect]
     Active Substance: FLUCONAZOLE
     Indication: PRODUCT USED FOR UNKNOWN INDICATION
     Dosage: 100 MG, QD
     Route: 042
     Dates: start: 20181026, end: 20181030
  3. AMOXICILLINE/ACIDE CLAVULANIQUE SANDOZ [Suspect]
     Active Substance: AMOXICILLIN\CLAVULANIC ACID
     Indication: LUNG DISORDER
     Dosage: 3 G, QD
     Route: 042
     Dates: start: 20181010, end: 20181015

REACTIONS (2)
  - Cholestatic liver injury [Recovering/Resolving]
  - Jaundice [Recovering/Resolving]

NARRATIVE: CASE EVENT DATE: 20181030
